FAERS Safety Report 21635002 (Version 2)
Quarter: 2023Q1

REPORT INFORMATION
  Report Type: Report from Study
  Country: FR (occurrence: FR)
  Receive Date: 20221123
  Receipt Date: 20230112
  Transmission Date: 20230418
  Serious: Yes (Hospitalization, Other)
  Sender: FDA-Public Use
  Company Number: FR-ORG100014127-2022001272

PATIENT

DRUGS (14)
  1. PROPRANOLOL HYDROCHLORIDE [Suspect]
     Active Substance: PROPRANOLOL HYDROCHLORIDE
     Indication: Hypertension
     Dosage: 80 MG/DAY
     Route: 048
     Dates: end: 20220713
  2. PROPRANOLOL HYDROCHLORIDE [Suspect]
     Active Substance: PROPRANOLOL HYDROCHLORIDE
     Indication: Off label use
  3. KETOCONAZOLE [Suspect]
     Active Substance: KETOCONAZOLE
     Indication: Pituitary-dependent Cushing^s syndrome
     Dosage: DAILY DOSE TITRATION FROM 21 TO 27 OCT 2021, FROM 200 MG TO 800 MG
     Route: 048
     Dates: start: 20211021, end: 20211206
  4. KETOCONAZOLE [Suspect]
     Active Substance: KETOCONAZOLE
     Dosage: 600 MG, QD (1/DAY)
     Route: 048
     Dates: start: 20211207, end: 20220225
  5. KETOCONAZOLE [Suspect]
     Active Substance: KETOCONAZOLE
     Dosage: 400 MG, QD (1/DAY)
     Route: 048
     Dates: start: 20220226, end: 20220527
  6. KETOCONAZOLE [Suspect]
     Active Substance: KETOCONAZOLE
     Dosage: 600 MG, QD (1/DAY)
     Route: 048
     Dates: start: 20220528, end: 20220711
  7. KETOCONAZOLE [Suspect]
     Active Substance: KETOCONAZOLE
     Dosage: 800 MG, QD (1/DAY)
     Route: 048
     Dates: start: 20220712, end: 20220713
  8. KETOCONAZOLE [Suspect]
     Active Substance: KETOCONAZOLE
     Dosage: 200 MG, QD (1/DAY)
     Route: 048
     Dates: start: 20220714, end: 20220714
  9. CANDESARTAN CILEXETIL [Suspect]
     Active Substance: CANDESARTAN CILEXETIL
     Indication: Hypertension
     Dosage: 16 MG, QD (1/DAY)
     Route: 048
     Dates: end: 20220709
  10. ESIDREX [Suspect]
     Active Substance: HYDROCHLOROTHIAZIDE
     Indication: Hypertension
     Dosage: 12.5 MG, QD (1/DAY)
     Route: 048
     Dates: end: 20220709
  11. ELIQUIS [Concomitant]
     Active Substance: APIXABAN
     Indication: Embolism venous
     Dosage: 10 MG, QD (1/DAY)
     Route: 048
  12. PANTOPRAZOLE [Concomitant]
     Active Substance: PANTOPRAZOLE
     Indication: Prophylaxis
     Dosage: 20 MG, QD (1/DAY)
     Route: 048
  13. Lamaline [Concomitant]
     Indication: Fibromyalgia
     Dosage: AS NEEDED
     Route: 048
     Dates: end: 20220714
  14. TRIMEBUTINE [Concomitant]
     Active Substance: TRIMEBUTINE
     Indication: Abdominal pain
     Dosage: 300 MG, QD (1/DAY)
     Route: 048

REACTIONS (10)
  - Acute kidney injury [Recovered/Resolved]
  - Adrenocortical insufficiency acute [Recovered/Resolved]
  - Hepatic cytolysis [Recovered/Resolved]
  - Mixed liver injury [Recovered/Resolved]
  - Hyperkalaemia [Recovered/Resolved]
  - Gamma-glutamyltransferase increased [Recovering/Resolving]
  - Sinus bradycardia [Recovered/Resolved]
  - Product use issue [Unknown]
  - Product use in unapproved indication [Unknown]
  - Off label use [Unknown]

NARRATIVE: CASE EVENT DATE: 20211202
